FAERS Safety Report 5889240-2 (Version None)
Quarter: 2008Q3

REPORT INFORMATION
  Report Type: 
  Country: None (occurrence: None)
  Receive Date: 20080919
  Receipt Date: 20080910
  Transmission Date: 20090109
  Serious: Yes (Hospitalization)
  Sender: FDA-Public Use
  Company Number: US-AMGEN-QUU307074

PATIENT
  Sex: Female

DRUGS (3)
  1. ENBREL [Suspect]
     Indication: RHEUMATOID ARTHRITIS
     Route: 058
     Dates: start: 19981201
  2. HUMIRA [Concomitant]
  3. ARAVA [Concomitant]

REACTIONS (5)
  - ARTHRALGIA [None]
  - DEFORMITY [None]
  - INJECTION SITE VESICLES [None]
  - JOINT SWELLING [None]
  - KNEE ARTHROPLASTY [None]
